FAERS Safety Report 8227568-1 (Version None)
Quarter: 2012Q1

REPORT INFORMATION
  Report Type: 
  Country: None (occurrence: None)
  Receive Date: 20120322
  Receipt Date: 20120321
  Transmission Date: 20120608
  Serious: Yes (Life-Threatening)
  Sender: FDA-Public Use
  Company Number: JP-BAYER-2012-027739

PATIENT
  Age: 1 Year
  Sex: Male

DRUGS (3)
  1. NORMAL HUMAN IMMUNOGLOBULIN [Concomitant]
     Indication: KAWASAKI'S DISEASE
     Dosage: UNK
     Route: 042
  2. ASPIRIN [Suspect]
     Indication: KAWASAKI'S DISEASE
     Dosage: UNK
     Route: 048
  3. ACETAMINOPHEN [Suspect]
     Indication: PYREXIA
     Dosage: UNK

REACTIONS (2)
  - STEVENS-JOHNSON SYNDROME [None]
  - TOXIC EPIDERMAL NECROLYSIS [None]
